FAERS Safety Report 8993146 (Version 2)
Quarter: 2015Q4

REPORT INFORMATION
  Report Type: Report from Study
  Country: US (occurrence: US)
  Receive Date: 20130102
  Receipt Date: 20151202
  Transmission Date: 20160305
  Serious: Yes (Hospitalization, Disabling, Other)
  Sender: FDA-Public Use
  Company Number: US-ROCHE-1108885

PATIENT
  Age: 52 Year
  Sex: Female
  Weight: 76.5 kg

DRUGS (4)
  1. BEVACIZUMAB [Suspect]
     Active Substance: BEVACIZUMAB
     Indication: NON-SMALL CELL LUNG CANCER
     Dosage: ARM B - REGIMEN 1:CYCLE = 3 WEEKS, LAST DOSE PRIOR TO AE: 27/JUL/2012
     Route: 042
     Dates: start: 20120706
  2. BEVACIZUMAB [Suspect]
     Active Substance: BEVACIZUMAB
     Dosage: AFTER 4 CYCLES
     Route: 042
     Dates: start: 20120706, end: 20120820
  3. CISPLATIN. [Suspect]
     Active Substance: CISPLATIN
     Indication: NON-SMALL CELL LUNG CANCER
     Dosage: ARM B - REGIMEN 1: CYCLE = 3 WEEKS, LAST DOSE PRIOR TO AE: 27/JUL/2012
     Route: 042
     Dates: start: 20120706, end: 20120820
  4. VINORELBINE TARTRATE. [Suspect]
     Active Substance: VINORELBINE TARTRATE
     Indication: NON-SMALL CELL LUNG CANCER
     Dosage: ARM B - REGIMEN 1:CYCLE = 3 WEEKS, LAST DOSE PRIOR TO AE: 03/AUG/2012
     Route: 042
     Dates: start: 20120706, end: 20120820

REACTIONS (9)
  - Hypertension [Not Recovered/Not Resolved]
  - Hypocalcaemia [Recovered/Resolved with Sequelae]
  - Hypokalaemia [Recovered/Resolved with Sequelae]
  - Seizure [Recovered/Resolved]
  - Pyrexia [Recovered/Resolved with Sequelae]
  - Sepsis [Not Recovered/Not Resolved]
  - White blood cell count decreased [Recovered/Resolved with Sequelae]
  - Hypomagnesaemia [Recovered/Resolved]
  - Neutrophil count decreased [Recovered/Resolved with Sequelae]

NARRATIVE: CASE EVENT DATE: 20120730
